FAERS Safety Report 6883845-8 (Version None)
Quarter: 2010Q3

REPORT INFORMATION
  Report Type: 
  Country: None (occurrence: None)
  Receive Date: 20100727
  Receipt Date: 20100722
  Transmission Date: 20110219
  Serious: Yes (Other)
  Sender: FDA-Public Use
  Company Number: A0871850A

PATIENT
  Age: 6 Year
  Sex: Male

DRUGS (1)
  1. UREA PEROXIDE [Suspect]
     Indication: CERUMEN REMOVAL
     Dosage: AURAL
     Route: 001

REACTIONS (4)
  - DEAFNESS [None]
  - DRUG PRESCRIBING ERROR [None]
  - EXPIRED DRUG ADMINISTERED [None]
  - OTORRHOEA [None]
